FAERS Safety Report 6076100-X (Version None)
Quarter: 2009Q1

REPORT INFORMATION
  Report Type: 
  Country: None (occurrence: None)
  Receive Date: 20090212
  Receipt Date: 20090203
  Transmission Date: 20090719
  Serious: Yes (Hospitalization, Other)
  Sender: FDA-Public Use
  Company Number: US-BAXTER-2009BH001649

PATIENT
  Age: 37 Year
  Sex: Female

DRUGS (2)
  1. DIANEAL [Suspect]
     Indication: PERITONEAL DIALYSIS
     Route: 033
     Dates: end: 20080101
  2. DIANEAL [Suspect]
     Indication: PERITONEAL DIALYSIS
     Route: 033
     Dates: end: 20080101

REACTIONS (4)
  - CONFUSIONAL STATE [None]
  - FUNGAL PERITONITIS [None]
  - PERITONITIS BACTERIAL [None]
  - POSTOPERATIVE WOUND INFECTION [None]
